FAERS Safety Report 9580218 (Version 1)
Quarter: 2013Q4

REPORT INFORMATION
  Report Type: Spontaneous
  Country: US (occurrence: None)
  Receive Date: 20131001
  Receipt Date: 20131001
  Transmission Date: 20140711
  Serious: Yes (Other)
  Sender: FDA-Public Use
  Company Number: None

PATIENT
  Age: 59 Year
  Sex: Female
  Weight: 90.72 kg

DRUGS (1)
  1. OXYCODONE/ACETAMINOPEHN [Suspect]
     Indication: PAIN MANAGEMENT
     Route: 048
     Dates: start: 20130820, end: 20130930

REACTIONS (1)
  - Drug ineffective [None]
